FAERS Safety Report 4552977-1 (Version None)
Quarter: 2005Q1

REPORT INFORMATION
  Report Type: 
  Country: None (occurrence: None)
  Receive Date: 20050113
  Receipt Date: 20050106
  Transmission Date: 20050727
  Serious: Yes (Hospitalization, Other)
  Sender: FDA-Public Use
  Company Number: 2004-01-0173

PATIENT
  Age: 44 Year
  Sex: Female
  Weight: 63 kg

DRUGS (9)
  1. INTRON A [Suspect]
     Indication: KAPOSI'S SARCOMA
     Dosage: SEE IMAGE
     Route: 058
     Dates: start: 20030214, end: 20030217
  2. INTRON A [Suspect]
     Indication: KAPOSI'S SARCOMA
     Dosage: SEE IMAGE
     Route: 058
     Dates: start: 20030214, end: 20030224
  3. INTRON A [Suspect]
     Indication: KAPOSI'S SARCOMA
     Dosage: SEE IMAGE
     Route: 058
     Dates: start: 20030217, end: 20030224
  4. TRIZIVIR [Suspect]
     Indication: HIV INFECTION
     Dates: start: 20030110, end: 20030218
  5. EPIVIR [Suspect]
     Indication: HIV INFECTION
     Dosage: 1 BD ORAL
     Route: 048
     Dates: start: 20030220, end: 20030224
  6. ZERIT [Suspect]
     Indication: HIV INFECTION
     Dosage: 40 MG BID ORAL
     Route: 048
     Dates: start: 20030220, end: 20030224
  7. ZIAGEN [Suspect]
     Indication: HIV INFECTION
     Dosage: 1 BID ORAL
     Route: 048
     Dates: start: 20030220, end: 20030224
  8. NOROXIN [Suspect]
     Indication: HAEMOLYTIC URAEMIC SYNDROME
     Dosage: ORAL
     Route: 048
     Dates: start: 20030217, end: 20030224
  9. OPIATE AND OPIOID ANALGESIC (NOS) [Concomitant]

REACTIONS (15)
  - ABDOMINAL PAIN [None]
  - ANGIOPATHY [None]
  - ASCITES [None]
  - BLOOD AMYLASE INCREASED [None]
  - CARDIOLIPIN ANTIBODY POSITIVE [None]
  - DIARRHOEA [None]
  - DRUG TOXICITY [None]
  - HAEMOLYTIC URAEMIC SYNDROME [None]
  - HYPERKALAEMIA [None]
  - INTESTINAL ISCHAEMIA [None]
  - LIPASE INCREASED [None]
  - MICROANGIOPATHY [None]
  - RENAL VESSEL DISORDER [None]
  - THERAPEUTIC RESPONSE DECREASED [None]
  - VOMITING [None]
